FAERS Safety Report 12629482 (Version 2)
Quarter: 2016Q3

REPORT INFORMATION
  Report Type: Spontaneous
  Country: US (occurrence: US)
  Receive Date: 20160808
  Receipt Date: 20160825
  Transmission Date: 20161109
  Serious: No
  Sender: FDA-Public Use
  Company Number: US-BAYER-2016-152638

PATIENT
  Age: 66 Year
  Sex: Female

DRUGS (6)
  1. MULTIVITAMIN [Concomitant]
     Active Substance: VITAMINS
     Dosage: UNK
  2. METHOTREXAT [METHOTREXATE] [Concomitant]
     Active Substance: METHOTREXATE
     Dosage: UNK
  3. VITAMIN B3 [Concomitant]
     Active Substance: NIACIN
     Dosage: UNK
  4. REMICADE [Concomitant]
     Active Substance: INFLIXIMAB
     Dosage: UNK
  5. ALEVE [Suspect]
     Active Substance: NAPROXEN SODIUM
     Indication: PROPHYLAXIS
     Dosage: 2 TO 3 DF,PRN
  6. FOLIC ACID. [Concomitant]
     Active Substance: FOLIC ACID
     Dosage: UNK

REACTIONS (2)
  - Expired product administered [None]
  - Product use issue [None]
